FAERS Safety Report 4797431-7 (Version None)
Quarter: 2005Q4

REPORT INFORMATION
  Report Type: 
  Country: None (occurrence: None)
  Receive Date: 20051011
  Receipt Date: 20051011
  Transmission Date: 20060501
  Serious: Yes (Other)
  Sender: FDA-Public Use
  Company Number: None

PATIENT
  Age: 57 Year
  Sex: Female
  Weight: 53.5 kg

DRUGS (1)
  1. GATIFLOXACIN [Suspect]
     Indication: SINUSITIS
     Dosage: 400MG,400MG QD,ORAL
     Route: 048
     Dates: start: 20050719, end: 20050729

REACTIONS (1)
  - RASH [None]
